FAERS Safety Report 14868838 (Version 1)
Quarter: 2018Q2

REPORT INFORMATION
  Report Type: Spontaneous
  Country: US (occurrence: US)
  Receive Date: 20180509
  Receipt Date: 20180509
  Transmission Date: 20180711
  Serious: No
  Sender: FDA-Public Use
  Company Number: US-PFIZER INC-2018188721

PATIENT
  Age: 25 Year
  Sex: Female
  Weight: 79.37 kg

DRUGS (2)
  1. VFEND [Suspect]
     Active Substance: VORICONAZOLE
     Indication: INFECTION
     Dosage: 200 MG, DAILY
     Route: 048
     Dates: start: 201712, end: 201803
  2. VFEND [Suspect]
     Active Substance: VORICONAZOLE
     Dosage: 50 MG, 2X/DAY
     Route: 048
     Dates: start: 201712, end: 201803

REACTIONS (2)
  - Fungal infection [Unknown]
  - Disease recurrence [Unknown]

NARRATIVE: CASE EVENT DATE: 20180507
